FAERS Safety Report 4580825-2 (Version None)
Quarter: 2005Q1

REPORT INFORMATION
  Report Type: 
  Country: None (occurrence: None)
  Receive Date: 20050127
  Receipt Date: 20040818
  Transmission Date: 20050727
  Serious: No
  Sender: FDA-Public Use
  Company Number: USA040875389

PATIENT
  Age: 6 Year
  Sex: Female
  Weight: 23 kg

DRUGS (2)
  1. STRATTERA [Suspect]
     Indication: ATTENTION DEFICIT/HYPERACTIVITY DISORDER
     Dosage: 18 MG IN THE EVENING
     Dates: start: 20040701
  2. TENEX [Concomitant]

REACTIONS (2)
  - ABNORMAL BEHAVIOUR [None]
  - THROAT IRRITATION [None]
